FAERS Safety Report 20802520 (Version 1)
Quarter: 2022Q2

REPORT INFORMATION
  Report Type: Spontaneous
  Country: US (occurrence: None)
  Receive Date: 20220509
  Receipt Date: 20220509
  Transmission Date: 20220720
  Serious: Yes (Life-Threatening, Hospitalization)
  Sender: FDA-Public Use
  Company Number: None

PATIENT
  Age: 97 Year
  Sex: Male
  Weight: 61 kg

DRUGS (1)
  1. SOTROVIMAB [Suspect]
     Active Substance: SOTROVIMAB
     Indication: COVID-19
     Dosage: FREQUENCY : ONCE;?
     Route: 042
     Dates: start: 20220112, end: 20220112

REACTIONS (7)
  - Confusional state [None]
  - Asthenia [None]
  - Dizziness [None]
  - Fall [None]
  - Transient ischaemic attack [None]
  - Cough [None]
  - Delirium [None]

NARRATIVE: CASE EVENT DATE: 20220115
